FAERS Safety Report 7391221-7 (Version None)
Quarter: 2011Q2

REPORT INFORMATION
  Report Type: 
  Country: None (occurrence: None)
  Receive Date: 20110404
  Receipt Date: 20100519
  Transmission Date: 20111010
  Serious: No
  Sender: FDA-Public Use
  Company Number: US-PFIZER INC-2010063065

PATIENT

DRUGS (4)
  1. SERTRALINE HYDROCHLORIDE [Suspect]
     Indication: PANIC DISORDER
  2. ZOLOFT [Suspect]
     Indication: PANIC DISORDER
  3. SERTRALINE HYDROCHLORIDE [Suspect]
     Indication: MAJOR DEPRESSION
     Dosage: UNK
  4. ZOLOFT [Suspect]
     Indication: MAJOR DEPRESSION
     Dosage: 200 MG, 1X/DAY
     Dates: start: 20080101

REACTIONS (5)
  - DIARRHOEA [None]
  - DIZZINESS [None]
  - INSOMNIA [None]
  - RASH [None]
  - DECREASED APPETITE [None]
